FAERS Safety Report 9398351 (Version 1)
Quarter: 2013Q3

REPORT INFORMATION
  Report Type: Spontaneous
  Country: DE (occurrence: DE)
  Receive Date: 20130712
  Receipt Date: 20130712
  Transmission Date: 20140515
  Serious: Yes (Death)
  Sender: FDA-Public Use
  Company Number: DE-GLAXOSMITHKLINE-D0079877A

PATIENT
  Age: 57 Year
  Sex: Male

DRUGS (1)
  1. VIANI FORTE [Suspect]
     Indication: ASTHMA
     Route: 055

REACTIONS (6)
  - Pulmonary embolism [Fatal]
  - Thrombosis [Fatal]
  - Myalgia [Unknown]
  - Cervicobrachial syndrome [Unknown]
  - Dysphonia [Unknown]
  - Vocal cord paralysis [Unknown]
